FAERS Safety Report 15246662 (Version 1)
Quarter: 2018Q3

REPORT INFORMATION
  Report Type: Spontaneous
  Country: US (occurrence: US)
  Receive Date: 20180806
  Receipt Date: 20180806
  Transmission Date: 20181010
  Serious: Yes (Other)
  Sender: FDA-Public Use
  Company Number: US-ANIPHARMA-2018-US-012994

PATIENT
  Sex: Male
  Weight: 88.45 kg

DRUGS (2)
  1. BICALUTAMIDE. [Suspect]
     Active Substance: BICALUTAMIDE
     Indication: PROSTATE CANCER
  2. LUPRON [Suspect]
     Active Substance: LEUPROLIDE ACETATE

REACTIONS (1)
  - Atrial fibrillation [Unknown]
